FAERS Safety Report 8169406-1 (Version None)
Quarter: 2012Q1

REPORT INFORMATION
  Report Type: 
  Country: None (occurrence: None)
  Receive Date: 20120222
  Receipt Date: 20120207
  Transmission Date: 20120608
  Serious: Yes (Other)
  Sender: FDA-Public Use
  Company Number: DSA_48877_2012

PATIENT
  Age: 61 Year
  Sex: Female

DRUGS (7)
  1. ENALAPRIL MALEATE (ENALAPRIL MALEATE) (20 MG, 10 MG) [Suspect]
     Indication: HYPERTENSION
     Dosage: (20 MG BID ORAL), (10 MG BID ORAL)
     Route: 048
     Dates: start: 20070101, end: 20111201
  2. ENALAPRIL MALEATE (ENALAPRIL MALEATE) (20 MG, 10 MG) [Suspect]
     Indication: HYPERTENSIVE NEPHROPATHY
     Dosage: (20 MG BID ORAL), (10 MG BID ORAL)
     Route: 048
     Dates: start: 20070101, end: 20111201
  3. ENALAPRIL MALEATE (ENALAPRIL MALEATE) (20 MG, 10 MG) [Suspect]
     Indication: HYPERTENSION
     Dosage: (20 MG BID ORAL), (10 MG BID ORAL)
     Route: 048
     Dates: start: 20111201
  4. ENALAPRIL MALEATE (ENALAPRIL MALEATE) (20 MG, 10 MG) [Suspect]
     Indication: HYPERTENSIVE NEPHROPATHY
     Dosage: (20 MG BID ORAL), (10 MG BID ORAL)
     Route: 048
     Dates: start: 20111201
  5. ASPIRIN [Suspect]
     Indication: INFLUENZA LIKE ILLNESS
     Dosage: (DF ORAL)
     Route: 048
  6. RASILEZ (RASILEZ-ALISKIREN FUMARATE) (NOT SPECIFIED) [Suspect]
     Indication: HYPERTENSIVE NEPHROPATHY
     Dosage: (300 MG QD)
     Dates: start: 20090301, end: 20111215
  7. RASILEZ (RASILEZ-ALISKIREN FUMARATE) (NOT SPECIFIED) [Suspect]
     Indication: HYPERTENSION
     Dosage: (300 MG QD)
     Dates: start: 20090301, end: 20111215

REACTIONS (3)
  - DRUG INTERACTION [None]
  - INFLUENZA [None]
  - RENAL FAILURE ACUTE [None]
